FAERS Safety Report 20866948 (Version 2)
Quarter: 2022Q2

REPORT INFORMATION
  Report Type: Spontaneous
  Country: US (occurrence: US)
  Receive Date: 20220524
  Receipt Date: 20220622
  Transmission Date: 20220721
  Serious: No
  Sender: FDA-Public Use
  Company Number: US-BRISTOL-MYERS SQUIBB COMPANY-2022-032030

PATIENT
  Age: 88 Year
  Sex: Male

DRUGS (2)
  1. REVLIMID [Suspect]
     Active Substance: LENALIDOMIDE
     Indication: Product used for unknown indication
     Dosage: 21 DAYS ON 7 DAYS OFF
     Route: 048
  2. REVLIMID [Suspect]
     Active Substance: LENALIDOMIDE
     Indication: Gastroenteritis
     Dosage: FREQUENCY-TAKE 1 CAPSULE BY MOUTH EVERY DAY FOR 21 DAYS, THEN 7 DAYS OFF.
     Route: 048

REACTIONS (3)
  - Illness [Unknown]
  - Arthralgia [Recovered/Resolved with Sequelae]
  - Constipation [Recovered/Resolved with Sequelae]
